FAERS Safety Report 6207699-8 (Version None)
Quarter: 2009Q2

REPORT INFORMATION
  Report Type: 
  Country: None (occurrence: None)
  Receive Date: 20090528
  Receipt Date: 20090513
  Transmission Date: 20091009
  Serious: Yes (Other)
  Sender: FDA-Public Use
  Company Number: ES-GENENTECH-283237

PATIENT
  Sex: Female

DRUGS (1)
  1. LUCENTIS [Suspect]
     Indication: MACULAR DEGENERATION
     Dosage: 10 MG/ML, UNK
     Route: 031

REACTIONS (3)
  - BLINDNESS UNILATERAL [None]
  - OPTIC ISCHAEMIC NEUROPATHY [None]
  - RETINAL ARTERY THROMBOSIS [None]
